FAERS Safety Report 10554531 (Version 1)
Quarter: 2014Q4

REPORT INFORMATION
  Report Type: Spontaneous
  Country: BR (occurrence: BR)
  Receive Date: 20141030
  Receipt Date: 20141030
  Transmission Date: 20150529
  Serious: Yes (Other)
  Sender: FDA-Public Use
  Company Number: BR-SA-2014SA145572

PATIENT
  Sex: Male
  Weight: 88 kg

DRUGS (4)
  1. TACROLIMUS. [Concomitant]
     Active Substance: TACROLIMUS
     Route: 048
  2. LANTUS SOLOSTAR [Suspect]
     Active Substance: INSULIN GLARGINE
     Indication: DIABETES MELLITUS
     Route: 058
     Dates: start: 2011
  3. SOLOSTAR [Concomitant]
     Active Substance: DEVICE
     Dates: start: 2011
  4. BACTRIM [Concomitant]
     Active Substance: SULFAMETHOXAZOLE\TRIMETHOPRIM
     Indication: INFECTION
     Dosage: FREQUENCY: 1 TABLET PER DAY THREE TIMES A WEEK
     Route: 048

REACTIONS (3)
  - Condition aggravated [Recovered/Resolved]
  - Haemorrhage [Recovered/Resolved]
  - Hepatic cirrhosis [Recovered/Resolved]
